FAERS Safety Report 12971642 (Version 2)
Quarter: 2016Q4

REPORT INFORMATION
  Report Type: Spontaneous
  Country: US (occurrence: US)
  Receive Date: 20161123
  Receipt Date: 20161203
  Transmission Date: 20170207
  Serious: Yes (Other)
  Sender: FDA-Public Use
  Company Number: US-LUNDBECK-DKLU2022995

PATIENT
  Age: 33 Year
  Sex: Female
  Weight: 46 kg

DRUGS (4)
  1. CORLANOR [Concomitant]
     Active Substance: IVABRADINE HYDROCHLORIDE
     Indication: SINUS TACHYCARDIA
     Route: 065
  2. NORTHERA [Suspect]
     Active Substance: DROXIDOPA
     Route: 065
     Dates: start: 20160830
  3. CORLANOR [Concomitant]
     Active Substance: IVABRADINE HYDROCHLORIDE
     Indication: ATRIAL TACHYCARDIA
  4. NORTHERA [Suspect]
     Active Substance: DROXIDOPA
     Indication: ORTHOSTATIC HYPOTENSION
     Route: 065
     Dates: start: 20160901

REACTIONS (5)
  - Loss of consciousness [Unknown]
  - Fall [Recovered/Resolved with Sequelae]
  - Drug dose omission [Recovered/Resolved]
  - Dizziness [Unknown]
  - Foot fracture [Unknown]

NARRATIVE: CASE EVENT DATE: 20161106
